FAERS Safety Report 6276000-6 (Version None)
Quarter: 2009Q3

REPORT INFORMATION
  Report Type: 
  Country: None (occurrence: None)
  Receive Date: 20090720
  Receipt Date: 20090713
  Transmission Date: 20100115
  Serious: Yes (Hospitalization, Other)
  Sender: FDA-Public Use
  Company Number: CERZ-1000694

PATIENT
  Age: 64 Year
  Sex: Female
  Weight: 86 kg

DRUGS (1)
  1. CEREZYME [Suspect]
     Indication: GAUCHER'S DISEASE
     Dosage: 4800 U, Q2W, INTRAVENOUS
     Route: 042
     Dates: start: 19961126

REACTIONS (8)
  - ANEURYSM [None]
  - ANXIETY [None]
  - ARTHROPATHY [None]
  - CHEST PAIN [None]
  - DECREASED APPETITE [None]
  - HEARING IMPAIRED [None]
  - NERVOUS SYSTEM DISORDER [None]
  - WEIGHT INCREASED [None]
